FAERS Safety Report 19055893 (Version 1)
Quarter: 2021Q1

REPORT INFORMATION
  Report Type: Report from Study
  Country: None (occurrence: CA)
  Receive Date: 20210325
  Receipt Date: 20210325
  Transmission Date: 20210420
  Serious: Yes (Other)
  Sender: FDA-Public Use
  Company Number: CA-ABBVIE-21K-028-3826376-00

PATIENT
  Sex: Female

DRUGS (1)
  1. HUMIRA [Suspect]
     Active Substance: ADALIMUMAB
     Indication: RHEUMATOID ARTHRITIS
     Route: 058
     Dates: start: 20160211

REACTIONS (4)
  - Pollakiuria [Recovering/Resolving]
  - Blood pressure increased [Not Recovered/Not Resolved]
  - Renal failure [Unknown]
  - Urinary incontinence [Recovering/Resolving]
